FAERS Safety Report 15708765 (Version 1)
Quarter: 2018Q4

REPORT INFORMATION
  Report Type: Spontaneous
  Country: US (occurrence: US)
  Receive Date: 20181211
  Receipt Date: 20181211
  Transmission Date: 20190205
  Serious: Yes (Other)
  Sender: FDA-Public Use
  Company Number: None

PATIENT
  Age: 58 Year
  Sex: Female
  Weight: 145.8 kg

DRUGS (2)
  1. DULOXETINE DELAYED-RELEASE CAPSULES USP [Suspect]
     Active Substance: DULOXETINE
     Indication: PAIN
     Dosage: ?          QUANTITY:1 CAPSULE(S);?
     Route: 048
     Dates: start: 20161201, end: 20181204
  2. DULOXETINE DELAYED-RELEASE CAPSULES USP [Suspect]
     Active Substance: DULOXETINE
     Indication: DEPRESSION
     Dosage: ?          QUANTITY:1 CAPSULE(S);?
     Route: 048
     Dates: start: 20161201, end: 20181204

REACTIONS (3)
  - Suicidal ideation [None]
  - Drug withdrawal syndrome [None]
  - Migraine [None]

NARRATIVE: CASE EVENT DATE: 20181203
